FAERS Safety Report 4635908-5 (Version None)
Quarter: 2005Q2

REPORT INFORMATION
  Report Type: 
  Country: None (occurrence: None)
  Receive Date: 20050415
  Receipt Date: 20050404
  Transmission Date: 20051028
  Serious: Yes (Hospitalization)
  Sender: FDA-Public Use
  Company Number: GB-BRISTOL-MYERS SQUIBB COMPANY-12919353

PATIENT
  Age: 63 Year
  Sex: Female

DRUGS (4)
  1. CISPLATIN [Suspect]
     Route: 042
     Dates: start: 20040913, end: 20040913
  2. DEXAMETHASONE [Concomitant]
     Dosage: 1 MG ONCE DAILY
     Route: 048
     Dates: start: 20040913, end: 20040915
  3. DOMPERIDONE [Concomitant]
     Route: 048
     Dates: start: 20040913, end: 20040915
  4. RADIATION THERAPY [Concomitant]

REACTIONS (8)
  - BLOOD PH INCREASED [None]
  - HAEMOGLOBIN DECREASED [None]
  - NAUSEA [None]
  - NIGHT SWEATS [None]
  - PYREXIA [None]
  - STAPHYLOCOCCAL INFECTION [None]
  - VOMITING [None]
  - WHITE BLOOD CELL COUNT DECREASED [None]
